FAERS Safety Report 8928832 (Version 2)
Quarter: 2013Q1

REPORT INFORMATION
  Report Type: Spontaneous
  Country: US (occurrence: US)
  Receive Date: 20121128
  Receipt Date: 20130222
  Transmission Date: 20140127
  Serious: No
  Sender: FDA-Public Use
  Company Number: US-PFIZER INC-2012297497

PATIENT
  Age: 52 Year
  Sex: Female

DRUGS (3)
  1. LYRICA [Suspect]
     Dosage: 225 MG, 2X/DAY
     Route: 048
  2. MOTRIN [Concomitant]
     Dosage: 800 MG, 2X/DAY
     Route: 048
  3. GABAPENTIN [Concomitant]
     Dosage: 100 MG, 3X/DAY
     Route: 048
     Dates: start: 20121107

REACTIONS (1)
  - Osteoarthritis [Unknown]
